FAERS Safety Report 7402112-7 (Version None)
Quarter: 2011Q1

REPORT INFORMATION
  Report Type: 
  Country: None (occurrence: None)
  Receive Date: 20110331
  Receipt Date: 20110315
  Transmission Date: 20110831
  Serious: Yes (Other)
  Sender: FDA-Public Use
  Company Number: 2011AP000459

PATIENT
  Age: 51 Year
  Sex: Female

DRUGS (5)
  1. AZATHIOPRINE [Concomitant]
  2. TACROLIMUS [Suspect]
     Indication: PRODUCT USED FOR UNKNOWN INDICATION
     Dates: start: 20070907
  3. EPREX [Suspect]
     Indication: NEPHROGENIC ANAEMIA
     Dosage: 2000 IU; TIW; SC
     Route: 058
     Dates: start: 19921203, end: 19930609
  4. MESALAMINE [Concomitant]
  5. MYCOPHENOLATE MOFETIL [Suspect]
     Indication: PRODUCT USED FOR UNKNOWN INDICATION
     Dates: start: 20071112, end: 20110113

REACTIONS (3)
  - THERAPEUTIC RESPONSE DECREASED [None]
  - ANTI-ERYTHROPOIETIN ANTIBODY NEGATIVE [None]
  - APLASIA PURE RED CELL [None]
